FAERS Safety Report 18458703 (Version 2)
Quarter: 2021Q1

REPORT INFORMATION
  Report Type: Spontaneous
  Country: BR (occurrence: BR)
  Receive Date: 20201103
  Receipt Date: 20210215
  Transmission Date: 20210419
  Serious: Yes (Other)
  Sender: FDA-Public Use
  Company Number: BR-B.I. PHARMACEUTICALS,INC./RIDGEFIELD-2020-BI-057815

PATIENT
  Age: 42 Year
  Sex: Female
  Weight: 74.6 kg

DRUGS (3)
  1. SPIRIVA RESPIMAT [Suspect]
     Active Substance: TIOTROPIUM BROMIDE
     Indication: BRONCHIAL DISORDER
     Dosage: 2 PUFFS A DAY
     Dates: start: 20200501, end: 20201101
  2. SPIRIVA RESPIMAT [Suspect]
     Active Substance: TIOTROPIUM BROMIDE
     Indication: ASTHMA
  3. ALENIA [BUDESONIDE;FORMOTEROL FUMARATE] [Suspect]
     Active Substance: BUDESONIDE\FORMOTEROL FUMARATE
     Indication: BRONCHIAL DISORDER
     Dosage: STRENGTH: 12/400

REACTIONS (1)
  - Breast cancer female [Recovered/Resolved]

NARRATIVE: CASE EVENT DATE: 20200501
